FAERS Safety Report 8873926 (Version 1)
Quarter: 2012Q4

REPORT INFORMATION
  Report Type: 
  Country: US (occurrence: US)
  Receive Date: 20121030
  Receipt Date: 20121030
  Transmission Date: 20130627
  Serious: Yes (Other)
  Sender: FDA-Public Use
  Company Number: CHPA2012US022125

PATIENT
  Age: 65 Year
  Sex: Male

DRUGS (5)
  1. MYOFLEX ANALGESIC CREME [Suspect]
     Indication: INJURY
     Dosage: Unk, SEVERAL TIMES A WEEK
     Route: 061
  2. CORTISONE [Concomitant]
     Dosage: Unk, Unk
     Dates: start: 20121003, end: 20121003
  3. DRUG THERAPY NOS [Concomitant]
     Dosage: Unk, Unk
  4. MELOXICAM [Concomitant]
     Dosage: Unk, Unk
  5. PERCOCET [Concomitant]
     Indication: PAIN
     Dosage: Unk, PRN

REACTIONS (7)
  - Intervertebral disc disorder [Not Recovered/Not Resolved]
  - Carpal tunnel syndrome [Not Recovered/Not Resolved]
  - Epicondylitis [Recovered/Resolved]
  - Rotator cuff syndrome [Recovered/Resolved]
  - Complication of device insertion [Recovered/Resolved]
  - Off label use [Unknown]
  - Therapeutic response decreased [Unknown]
